FAERS Safety Report 6124071-X (Version None)
Quarter: 2009Q1

REPORT INFORMATION
  Report Type: 
  Country: None (occurrence: None)
  Receive Date: 20090319
  Receipt Date: 20090311
  Transmission Date: 20090719
  Serious: Yes (Hospitalization, Other)
  Sender: FDA-Public Use
  Company Number: PHHY2009FR08837

PATIENT
  Sex: Female

DRUGS (3)
  1. VOLTAREN [Suspect]
     Indication: MUSCULOSKELETAL PAIN
     Dosage: 75 MG/DAY
  2. COUMADIN [Interacting]
     Indication: ATRIAL FIBRILLATION
     Dosage: 4 MG/DAY
  3. MONOCRIXO [Interacting]
     Indication: MUSCULOSKELETAL PAIN
     Dosage: 200 MG, QD

REACTIONS (5)
  - DRUG INTERACTION [None]
  - HAEMATEMESIS [None]
  - MELAENA [None]
  - ULCER [None]
  - UPPER GASTROINTESTINAL HAEMORRHAGE [None]
